FAERS Safety Report 7971578-6 (Version None)
Quarter: 2011Q4

REPORT INFORMATION
  Report Type: 
  Country: None (occurrence: None)
  Receive Date: 20111212
  Receipt Date: 20111209
  Transmission Date: 20120403
  Serious: Yes (Death)
  Sender: FDA-Public Use
  Company Number: GB-ABBOTT-11P-167-0882039-00

PATIENT
  Age: 57 Year
  Sex: Male
  Weight: 125 kg

DRUGS (10)
  1. ATENOLOL [Concomitant]
     Indication: PRODUCT USED FOR UNKNOWN INDICATION
  2. SPIRIVA [Concomitant]
     Indication: PRODUCT USED FOR UNKNOWN INDICATION
  3. FOLIC ACID [Concomitant]
     Indication: PROPHYLAXIS
     Route: 048
  4. AZULFIDINE [Concomitant]
     Indication: RHEUMATOID ARTHRITIS
     Route: 048
     Dates: start: 19990511
  5. METHOTREXATE [Concomitant]
     Indication: RHEUMATOID ARTHRITIS
     Route: 048
     Dates: start: 20060712
  6. HYDROXYCHLOROQUINE [Concomitant]
     Indication: RHEUMATOID ARTHRITIS
     Route: 048
     Dates: start: 20020514
  7. HUMIRA [Suspect]
     Indication: RHEUMATOID ARTHRITIS
     Route: 058
     Dates: start: 20110201
  8. BENDROFLUMETHIAZIDE [Concomitant]
     Indication: HYPERTENSION
     Route: 048
  9. AMITRIPTYLINE HCL [Concomitant]
     Indication: PAIN
     Route: 048
  10. PERINDOPRIL [Concomitant]
     Indication: PRODUCT USED FOR UNKNOWN INDICATION

REACTIONS (1)
  - MYOCARDIAL INFARCTION [None]
